FAERS Safety Report 7519656-X (Version None)
Quarter: 2011Q2

REPORT INFORMATION
  Report Type: 
  Country: None (occurrence: None)
  Receive Date: 20110602
  Receipt Date: 20110525
  Transmission Date: 20111010
  Serious: Yes (Death)
  Sender: FDA-Public Use
  Company Number: B0721838A

PATIENT
  Sex: Female
  Weight: 50 kg

DRUGS (4)
  1. PLAVIX [Suspect]
     Indication: ARTERITIS OBLITERANS
     Dosage: 75MG PER DAY
     Route: 048
  2. ARIXTRA [Suspect]
     Indication: DEEP VEIN THROMBOSIS
     Dosage: 7.5MG PER DAY
     Route: 058
     Dates: start: 20110317, end: 20110324
  3. ADANCOR [Concomitant]
     Indication: ARTERITIS OBLITERANS
     Dosage: 20MG PER DAY
     Route: 048
  4. AERIUS [Concomitant]
     Indication: CHRONIC OBSTRUCTIVE PULMONARY DISEASE
     Dosage: 20MG PER DAY
     Route: 048

REACTIONS (3)
  - CIRCULATORY COLLAPSE [None]
  - DRUG INTERACTION [None]
  - HAEMATOMA [None]
